FAERS Safety Report 14528308 (Version 2)
Quarter: 2018Q1

REPORT INFORMATION
  Report Type: Spontaneous
  Country: US (occurrence: US)
  Receive Date: 20180214
  Receipt Date: 20180220
  Transmission Date: 20180509
  Serious: Yes (Other)
  Sender: FDA-Public Use
  Company Number: US-LUPIN PHARMACEUTICALS INC.-2018-00280

PATIENT
  Age: 56 Year
  Sex: Male
  Weight: 113.38 kg

DRUGS (2)
  1. LOVASTATIN TABLETS USP, 20 MG [Suspect]
     Active Substance: LOVASTATIN
     Indication: HYPERCHOLESTEROLAEMIA
     Dosage: 20 MG, QD
     Route: 048
     Dates: start: 2003, end: 20180109
  2. LOVASTATIN TABLETS USP, 20 MG [Suspect]
     Active Substance: LOVASTATIN
     Dosage: 20 MG, QD
     Route: 048
     Dates: start: 20180109, end: 20180109

REACTIONS (4)
  - Burning sensation [Recovered/Resolved]
  - Product colour issue [Unknown]
  - Urticaria [Recovered/Resolved]
  - Pruritus [Recovered/Resolved]

NARRATIVE: CASE EVENT DATE: 20180109
